FAERS Safety Report 6969418-7 (Version None)
Quarter: 2010Q3

REPORT INFORMATION
  Report Type: 
  Country: None (occurrence: None)
  Receive Date: 20100902
  Receipt Date: 20100817
  Transmission Date: 20110219
  Serious: Yes (Other)
  Sender: FDA-Public Use
  Company Number: FKO201000341

PATIENT
  Age: 38 Year
  Sex: Male

DRUGS (4)
  1. IFOSFAMIDE [Suspect]
     Indication: HODGKIN'S DISEASE MIXED CELLULARITY STAGE IV
     Dosage: 92000 MG/M2, DAYS 1-4)
  2. MESNA (MESNA) (MESNA) [Concomitant]
  3. GENCITABINE (GEMCITABINE) (GEMCITABINE) [Concomitant]
  4. VINORELBINE (VINORELBINE) (VINORELBINE) [Concomitant]

REACTIONS (16)
  - AGITATION [None]
  - ANXIETY [None]
  - CONFUSIONAL STATE [None]
  - DYSARTHRIA [None]
  - DYSTONIA [None]
  - EXTRAPYRAMIDAL DISORDER [None]
  - HALLUCINATION [None]
  - HYPOKINESIA [None]
  - LETHARGY [None]
  - MUTISM [None]
  - NEUROTOXICITY [None]
  - NIGHTMARE [None]
  - RESTLESSNESS [None]
  - SALIVARY HYPERSECRETION [None]
  - THERAPEUTIC RESPONSE DECREASED [None]
  - TREMOR [None]
